FAERS Safety Report 20699172 (Version 3)
Quarter: 2022Q2

REPORT INFORMATION
  Report Type: Spontaneous
  Country: US (occurrence: US)
  Receive Date: 20220412
  Receipt Date: 20220530
  Transmission Date: 20220721
  Serious: No
  Sender: FDA-Public Use
  Company Number: US-ORGANON-O2204USA000591

PATIENT
  Age: 14 Year
  Sex: Female
  Weight: 70.748 kg

DRUGS (1)
  1. NEXPLANON [Suspect]
     Active Substance: ETONOGESTREL
     Dosage: 1 IMPLANT IN LLEFT INNER UPPER ARM (NON-DOMINANT ARM)
     Route: 059
     Dates: start: 20220321, end: 20220321

REACTIONS (3)
  - Complication of device insertion [Recovered/Resolved]
  - Needle issue [Unknown]
  - No adverse event [Unknown]

NARRATIVE: CASE EVENT DATE: 20220321
